FAERS Safety Report 15640724 (Version 4)
Quarter: 2019Q1

REPORT INFORMATION
  Report Type: Spontaneous
  Country: GR (occurrence: GR)
  Receive Date: 20181120
  Receipt Date: 20190213
  Transmission Date: 20190417
  Serious: Yes (Other)
  Sender: FDA-Public Use
  Company Number: GR-BAUSCH-BL-2018-032147

PATIENT
  Age: 61 Year
  Sex: Female

DRUGS (2)
  1. KYNTHEUM [Suspect]
     Active Substance: BRODALUMAB
     Indication: PSORIASIS
     Dosage: FIRST INJECTION OF BRODALUMAB, ONE MONTH AGO
     Route: 058
     Dates: start: 2018, end: 2018
  2. KYNTHEUM [Suspect]
     Active Substance: BRODALUMAB
     Indication: PSORIATIC ARTHROPATHY

REACTIONS (2)
  - Lymphocyte morphology abnormal [Recovered/Resolved]
  - Arthralgia [Unknown]

NARRATIVE: CASE EVENT DATE: 2018
